FAERS Safety Report 15623926 (Version 3)
Quarter: 2019Q3

REPORT INFORMATION
  Report Type: Spontaneous
  Country: CA (occurrence: CA)
  Receive Date: 20181116
  Receipt Date: 20190712
  Transmission Date: 20191004
  Serious: Yes (Life-Threatening, Hospitalization, Other)
  Sender: FDA-Public Use
  Company Number: CA-TEVA-2018-CA-976218

PATIENT
  Age: 82 Year
  Sex: Female

DRUGS (11)
  1. DIPHENHYDRAMINE. [Concomitant]
     Active Substance: DIPHENHYDRAMINE
  2. RANITIDINE. [Concomitant]
     Active Substance: RANITIDINE
  3. LOXAPINE. [Concomitant]
     Active Substance: LOXAPINE
     Indication: ANXIETY DISORDER
     Route: 065
  4. ETOMIDATE. [Concomitant]
     Active Substance: ETOMIDATE
  5. AMLODIPINE [Concomitant]
     Active Substance: AMLODIPINE BESYLATE
  6. METHYLPREDNISOLONE NOS [Concomitant]
     Active Substance: METHYLPREDNISOLONE
  7. ROCURONIUM [Concomitant]
     Active Substance: ROCURONIUM BROMIDE
  8. HYDROCHLOROTHIAZIDE. [Concomitant]
     Active Substance: HYDROCHLOROTHIAZIDE
     Indication: HYPERTENSION
     Route: 065
  9. METHYLPREDNISOLONE SODIUM SUCCINATE FOR INJECTION [Concomitant]
     Active Substance: METHYLPREDNISOLONE SODIUM SUCCINATE
  10. RAMIPRIL. [Suspect]
     Active Substance: RAMIPRIL
     Indication: HYPERTENSION
     Route: 065
  11. EPINEPHRINE. [Concomitant]
     Active Substance: EPINEPHRINE

REACTIONS (2)
  - Drug hypersensitivity [Recovering/Resolving]
  - Angioedema [Recovering/Resolving]
